FAERS Safety Report 6658729-0 (Version None)
Quarter: 2010Q1

REPORT INFORMATION
  Report Type: 
  Country: None (occurrence: None)
  Receive Date: 20100330
  Receipt Date: 20100322
  Transmission Date: 20100710
  Serious: Yes (Hospitalization, Other)
  Sender: FDA-Public Use
  Company Number: PHEH2009US18881

PATIENT
  Age: 52 Year
  Sex: Female
  Weight: 92.971 kg

DRUGS (2)
  1. TOBI [Suspect]
     Indication: CYSTIC FIBROSIS
     Dosage: 300 MG, BID
     Dates: start: 20090425, end: 20090618
  2. PCOGENT [Concomitant]
     Dosage: 2 MG Q12
     Route: 048
     Dates: start: 19940101, end: 20090209

REACTIONS (2)
  - CREATININE RENAL CLEARANCE INCREASED [None]
  - RENAL FAILURE [None]
